FAERS Safety Report 5232396-5 (Version None)
Quarter: 2007Q1

REPORT INFORMATION
  Report Type: 
  Country: None (occurrence: None)
  Receive Date: 20070205
  Receipt Date: 20070123
  Transmission Date: 20070707
  Serious: Yes (Hospitalization, Other)
  Sender: FDA-Public Use
  Company Number: ST-2007-009500

PATIENT
  Age: 59 Year
  Sex: Male
  Weight: 78 kg

DRUGS (3)
  1. OLMETEC [Suspect]
     Indication: ESSENTIAL HYPERTENSION
     Dosage: 40 MG QD PO
     Route: 048
     Dates: start: 20060425, end: 20061117
  2. ODRIC [Concomitant]
  3. CALBLOCK [Concomitant]

REACTIONS (1)
  - CEREBRAL INFARCTION [None]
